FAERS Safety Report 6532416-1 (Version None)
Quarter: 2010Q1

REPORT INFORMATION
  Report Type: 
  Country: None (occurrence: None)
  Receive Date: 20100108
  Receipt Date: 20091229
  Transmission Date: 20100710
  Serious: Yes (Other)
  Sender: FDA-Public Use
  Company Number: FR-ELI_LILLY_AND_COMPANY-FR200911006148

PATIENT
  Sex: Male
  Weight: 72 kg

DRUGS (9)
  1. BYETTA [Suspect]
     Indication: TYPE 2 DIABETES MELLITUS
     Dosage: 5 UG, 2/D
     Route: 058
     Dates: start: 20081009
  2. BYETTA [Suspect]
     Dosage: 10 UG, 2/D
     Route: 058
     Dates: end: 20090716
  3. DAONIL [Concomitant]
     Indication: TYPE 2 DIABETES MELLITUS
     Dosage: 15 MG, DAILY (1/D)
     Route: 048
     Dates: start: 20020101
  4. GLUCOPHAGE [Concomitant]
     Indication: TYPE 2 DIABETES MELLITUS
     Dosage: 1000 MG, 2/D
     Route: 048
     Dates: start: 19990101
  5. CRESTOR [Concomitant]
     Indication: DYSLIPIDAEMIA
     Dosage: 20 MG, DAILY (1/D)
     Route: 048
     Dates: start: 20071001, end: 20090917
  6. ATENOLOL [Concomitant]
     Indication: ARRHYTHMIA
     Dosage: 50 MG, DAILY (1/D)
     Route: 048
     Dates: start: 20060913
  7. COAPROVEL [Concomitant]
     Indication: HYPERTENSION
     Dosage: 300MG/12.5MG, DAILY (1/D)
     Route: 048
     Dates: start: 20060913
  8. LOXEN [Concomitant]
     Indication: HYPERTENSION
     Dosage: 50 MG, DAILY (1/D)
     Route: 048
     Dates: start: 20060413
  9. FLECAINIDE ACETATE [Concomitant]
     Indication: ARRHYTHMIA
     Dosage: 100 MG, DAILY (1/D)
     Route: 048
     Dates: start: 20060413

REACTIONS (1)
  - HEPATIC NEOPLASM MALIGNANT [None]
